FAERS Safety Report 8409503-6 (Version None)
Quarter: 2012Q2

REPORT INFORMATION
  Report Type: 
  Country: None (occurrence: None)
  Receive Date: 20120531
  Receipt Date: 20120531
  Transmission Date: 20120825
  Serious: Yes (Hospitalization)
  Sender: FDA-Public Use
  Company Number: None

PATIENT
  Age: 49 Year
  Sex: Male
  Weight: 72.12 kg

DRUGS (10)
  1. BACTRIM DS [Concomitant]
  2. TRAMADOL HCL [Concomitant]
  3. EMTRICITABINE/TENOFOVIR DISOPROXIL FUMARATE [Concomitant]
  4. GABAPENTIN [Concomitant]
  5. NITROFURANTOIN [Concomitant]
  6. PRAVASTATIN [Suspect]
     Indication: DYSLIPIDAEMIA
     Dosage: 20 MG DAILY ORAL
     Route: 048
     Dates: start: 20111001
  7. AMITRIPTLINE HYDROCHLORIDE TAB [Concomitant]
  8. RISPERIDONE [Concomitant]
  9. ASPIRIN [Concomitant]
  10. LOPINAVIR AND RITONAVIR [Concomitant]

REACTIONS (5)
  - RENAL FAILURE [None]
  - RHABDOMYOLYSIS [None]
  - GAIT DISTURBANCE [None]
  - DEHYDRATION [None]
  - BLOOD CREATINE PHOSPHOKINASE INCREASED [None]
